FAERS Safety Report 7426044 (Version 2)
Quarter: 2014Q1

REPORT INFORMATION
  Report Type: Report from Study
  Country: US (occurrence: US)
  Receive Date: 20100621
  Receipt Date: 20140218
  Transmission Date: 20141002
  Serious: Yes (Other)
  Sender: FDA-Public Use
  Company Number: US-BAYER-201028624GPV

PATIENT
  Age: 33 Year
  Sex: Female

DRUGS (1)
  1. INTERFERON BETA 1B [Suspect]
     Indication: MULTIPLE SCLEROSIS
     Route: 058

REACTIONS (1)
  - Focal segmental glomerulosclerosis [Recovering/Resolving]
